FAERS Safety Report 8555350 (Version 5)
Quarter: 2012Q4

REPORT INFORMATION
  Report Type: 
  Country: US (occurrence: US)
  Receive Date: 20120510
  Receipt Date: 20120926
  Transmission Date: 20130627
  Serious: Yes (Other)
  Sender: FDA-Public Use
  Company Number: US-JNJFOC-20120414349

PATIENT
  Age: 59 None
  Sex: Female
  Weight: 68.04 kg

DRUGS (15)
  1. CIMETIDINE [Concomitant]
     Indication: GASTROOESOPHAGEAL REFLUX DISEASE
     Route: 065
  2. PRILOSEC [Concomitant]
     Indication: GASTROOESOPHAGEAL REFLUX DISEASE
     Route: 065
  3. CREON [Concomitant]
     Indication: HOT FLUSH
     Route: 065
  4. CETIRIZINE [Concomitant]
     Indication: MULTIPLE ALLERGIES
     Dosage: daily
     Route: 065
  5. ALL OTHER THERAPEUTIC PRODUCTS [Concomitant]
  6. UNKNOWN MEDICATION [Concomitant]
     Indication: MIGRAINE
  7. NORVASC [Concomitant]
     Indication: HYPERTENSION
     Route: 065
  8. ZANTAC [Concomitant]
     Route: 065
  9. EXTRA STRENGTH TYLENOL [Suspect]
     Indication: ARTHRALGIA
     Dosage: patient took 2 pills every six hours on alternating days, stopped use a couple months ago.
     Route: 048
     Dates: start: 200801, end: 201106
  10. EXTRA STRENGTH TYLENOL [Suspect]
     Indication: ARTHRALGIA
     Dosage: patient took 2 pills every six hours on alternating days, stopped use a couple months ago.
     Route: 048
     Dates: start: 200801, end: 201106
  11. TYLENOL PM EXTRA STRENGTH [Suspect]
     Indication: ARTHRALGIA
     Dosage: patient took 2 pills every six hours on alternating days, stopped use a couple months ago.
     Route: 048
  12. TYLENOL COLD [Suspect]
     Indication: ARTHRALGIA
     Route: 048
  13. ANTIHYPERTENSIVE [Concomitant]
     Indication: HYPERTENSION
     Route: 065
  14. VITAMIN D [Concomitant]
     Indication: BONE DISORDER
     Route: 065
  15. VITAMIN D [Concomitant]
     Indication: OSTEOPOROSIS
     Route: 065

REACTIONS (5)
  - Hepatic failure [Recovered/Resolved]
  - Hepatic cirrhosis [Recovered/Resolved]
  - Skin lesion [Recovered/Resolved]
  - Incorrect drug administration duration [Unknown]
  - Off label use [Unknown]
